FAERS Safety Report 4883687-9 (Version None)
Quarter: 2006Q1

REPORT INFORMATION
  Report Type: 
  Country: None (occurrence: None)
  Receive Date: 20060113
  Receipt Date: 20060108
  Transmission Date: 20060701
  Serious: Yes (Other)
  Sender: FDA-Public Use
  Company Number: USA-2006-0022167

PATIENT
  Age: 68 Year
  Sex: Female

DRUGS (2)
  1. OXYCONTIN [Suspect]
     Dosage: UNK
     Route: 065
  2. LIDOCAINE [Suspect]
     Dosage: UNK, DAILY, TOPICAL
     Route: 061

REACTIONS (15)
  - ANGER [None]
  - ANOREXIA [None]
  - DISTURBANCE IN ATTENTION [None]
  - DRUG DEPENDENCE [None]
  - DRUG EFFECT INCREASED [None]
  - DYSARTHRIA [None]
  - FEELING ABNORMAL [None]
  - GAIT DISTURBANCE [None]
  - HEAD DISCOMFORT [None]
  - INCOHERENT [None]
  - INTENTIONAL DRUG MISUSE [None]
  - NAUSEA [None]
  - PARANOIA [None]
  - SUICIDAL IDEATION [None]
  - WEIGHT DECREASED [None]
